FAERS Safety Report 23128821 (Version 1)
Quarter: 2023Q4

REPORT INFORMATION
  Report Type: Spontaneous
  Country: US (occurrence: US)
  Receive Date: 20231031
  Receipt Date: 20231031
  Transmission Date: 20240110
  Serious: Yes (Other)
  Sender: FDA-Public Use
  Company Number: US-BAYER-2023A150894

PATIENT
  Age: 54 Year
  Sex: Male

DRUGS (3)
  1. ADEMPAS [Suspect]
     Active Substance: RIOCIGUAT
     Indication: Pulmonary hypertension
     Dosage: 2.5 MG, TID
     Route: 048
     Dates: start: 20210702
  2. COUMADIN [Concomitant]
     Active Substance: WARFARIN SODIUM
  3. MORPHINE [Concomitant]
     Active Substance: MORPHINE

REACTIONS (5)
  - Crohn^s disease [None]
  - Pain [None]
  - Post procedural swelling [None]
  - Leg amputation [None]
  - Obstructive sleep apnoea syndrome [None]

NARRATIVE: CASE EVENT DATE: 20231002
